FAERS Safety Report 10166726 (Version 4)
Quarter: 2014Q2

REPORT INFORMATION
  Report Type: Report from Study
  Country: DK (occurrence: DK)
  Receive Date: 20140512
  Receipt Date: 20140619
  Transmission Date: 20141212
  Serious: Yes (Life-Threatening, Hospitalization, Other)
  Sender: FDA-Public Use
  Company Number: DK-SA-2014SA059800

PATIENT
  Age: 72 Year
  Sex: Female

DRUGS (9)
  1. CLOPIDOGREL BISULFATE [Suspect]
     Indication: PERCUTANEOUS CORONARY INTERVENTION
     Route: 048
     Dates: start: 20140409, end: 20140409
  2. ACETYLSALICYLIC ACID [Suspect]
     Indication: ISCHAEMIC HEART DISEASE PROPHYLAXIS
     Route: 048
  3. ANGIOX [Suspect]
     Indication: PERCUTANEOUS CORONARY INTERVENTION
     Dosage: BLOUS DOSE
     Route: 065
     Dates: start: 20140410, end: 20140410
  4. ANGIOX [Suspect]
     Indication: PERCUTANEOUS CORONARY INTERVENTION
     Dosage: DOSE:112MG/HR?FOR 92 MINUTES
     Route: 065
     Dates: start: 20140410, end: 20140410
  5. ANGIOX [Suspect]
     Indication: PERCUTANEOUS CORONARY INTERVENTION
     Route: 065
     Dates: start: 20140410, end: 20140410
  6. HYDROCHLOROTHIAZIDE [Concomitant]
     Indication: HYPERTENSION
  7. LERCANIDIPINE [Concomitant]
     Indication: HYPERTENSION
  8. LOSARTAN [Concomitant]
     Indication: HYPERTENSION
  9. METOPROLOL [Concomitant]
     Indication: HYPERTENSION

REACTIONS (3)
  - Coronary artery dissection [Recovered/Resolved]
  - Post procedural haemorrhage [Recovered/Resolved]
  - Ventricular fibrillation [Recovered/Resolved]
